FAERS Safety Report 11240168 (Version 2)
Quarter: 2015Q3

REPORT INFORMATION
  Report Type: Spontaneous
  Country: ES (occurrence: ES)
  Receive Date: 20150706
  Receipt Date: 20150715
  Transmission Date: 20151125
  Serious: Yes (Death)
  Sender: FDA-Public Use
  Company Number: ES-PFIZER INC-2015222165

PATIENT
  Age: 25 Year
  Sex: Female

DRUGS (4)
  1. LYRICA [Suspect]
     Active Substance: PREGABALIN
  2. TRANXILIUM [Interacting]
     Active Substance: CLORAZEPATE DIPOTASSIUM
  3. HEROIN [Interacting]
     Active Substance: DIACETYLMORPHINE
  4. TRANKIMAZIN [Interacting]
     Active Substance: ALPRAZOLAM

REACTIONS (5)
  - Drug abuse [Fatal]
  - Cardio-respiratory arrest [Fatal]
  - Theft [Unknown]
  - Drug interaction [Fatal]
  - Sedation [Fatal]

NARRATIVE: CASE EVENT DATE: 201506
